FAERS Safety Report 5293829-1 (Version None)
Quarter: 2007Q2

REPORT INFORMATION
  Report Type: 
  Country: None (occurrence: None)
  Receive Date: 20070405
  Receipt Date: 20070323
  Transmission Date: 20071010
  Serious: Yes (Hospitalization)
  Sender: FDA-Public Use
  Company Number: 2007AL001239

PATIENT
  Age: 80 Year
  Sex: Male

DRUGS (3)
  1. RANITIDINE SYRUP (RANITIDINE ORAL SUSPENSION ) USP, 125MG/5ML [Suspect]
  2. CODEINE PHOSPHATE [Concomitant]
  3. TRAPIDIL [Concomitant]

REACTIONS (9)
  - BLOOD LACTATE DEHYDROGENASE INCREASED [None]
  - DRUG ERUPTION [None]
  - ERYTHEMA [None]
  - GLYCOSYLATED HAEMOGLOBIN INCREASED [None]
  - LYMPHADENOPATHY [None]
  - LYMPHOCYTE STIMULATION TEST POSITIVE [None]
  - OEDEMA [None]
  - PIGMENTATION DISORDER [None]
  - RASH PAPULAR [None]
